FAERS Safety Report 12134143 (Version 1)
Quarter: 2016Q1

REPORT INFORMATION
  Report Type: Spontaneous
  Country: US (occurrence: US)
  Receive Date: 20160301
  Receipt Date: 20160301
  Transmission Date: 20160526
  Serious: No
  Sender: FDA-Public Use
  Company Number: US-BAYER-2016-039261

PATIENT
  Age: 77 Year
  Sex: Female
  Weight: 63.49 kg

DRUGS (4)
  1. COLAZAL [Concomitant]
     Active Substance: BALSALAZIDE DISODIUM
  2. MIRALAX [Suspect]
     Active Substance: POLYETHYLENE GLYCOL 3350
     Indication: COLONOSCOPY
     Dosage: 1 DF, QD
     Route: 048
     Dates: start: 2010
  3. ONE-A-DAY [Concomitant]
  4. DIOVAN [Concomitant]
     Active Substance: VALSARTAN

REACTIONS (1)
  - Product use issue [None]

NARRATIVE: CASE EVENT DATE: 2010
